FAERS Safety Report 18542430 (Version 1)
Quarter: 2020Q4

REPORT INFORMATION
  Report Type: Spontaneous
  Country: US (occurrence: US)
  Receive Date: 20201124
  Receipt Date: 20201124
  Transmission Date: 20210114
  Serious: No
  Sender: FDA-Public Use
  Company Number: US-ASTRAZENECA-2020SF18143

PATIENT
  Age: 51 Year
  Sex: Male
  Weight: 116.1 kg

DRUGS (1)
  1. BYDUREON BCISE [Suspect]
     Active Substance: EXENATIDE
     Indication: TYPE 2 DIABETES MELLITUS
     Route: 058
     Dates: end: 202009

REACTIONS (4)
  - Drug dose omission by device [Unknown]
  - Injection site nodule [Recovered/Resolved]
  - Device malfunction [Unknown]
  - Device leakage [Unknown]
